FAERS Safety Report 7625612-3 (Version None)
Quarter: 2011Q3

REPORT INFORMATION
  Report Type: 
  Country: None (occurrence: None)
  Receive Date: 20110721
  Receipt Date: 20110711
  Transmission Date: 20111222
  Serious: Yes (Life-Threatening, Other)
  Sender: FDA-Public Use
  Company Number: US-EISAI INC-E7273-00236-SPO-US

PATIENT
  Age: 25 Year
  Sex: Female
  Weight: 63 kg

DRUGS (1)
  1. TARGRETIN [Suspect]
     Indication: LYMPHOMATOID PAPULOSIS
     Dosage: UNKNOWN
     Route: 061
     Dates: start: 20110518, end: 20110521

REACTIONS (2)
  - HEADACHE [None]
  - MYALGIA [None]
